FAERS Safety Report 6368018-X (Version None)
Quarter: 2009Q3

REPORT INFORMATION
  Report Type: 
  Country: None (occurrence: None)
  Receive Date: 20090922
  Receipt Date: 20090917
  Transmission Date: 20100115
  Serious: Yes (Hospitalization)
  Sender: FDA-Public Use
  Company Number: US-B.I. PHARMACEUTICALS,INC./RIDGEFIELD-2009-BP-11006BP

PATIENT
  Sex: Female

DRUGS (6)
  1. SPIRIVA [Suspect]
     Indication: EMPHYSEMA
     Dosage: 18 MCG
     Route: 055
  2. SYMBICORT [Concomitant]
     Indication: EMPHYSEMA
     Dosage: 4 PUF
     Route: 055
     Dates: start: 20080101
  3. PROVENTIL-HFA [Concomitant]
     Indication: EMPHYSEMA
     Route: 055
  4. DYAZIDE [Concomitant]
     Indication: HYPERTENSION
  5. AMLODIPINE [Concomitant]
     Indication: HYPERTENSION
     Dates: start: 20090401
  6. THEOPHYLLINE [Concomitant]
     Dosage: 100 MG
     Route: 048

REACTIONS (3)
  - BACK PAIN [None]
  - DYSPNOEA [None]
  - VISUAL ACUITY REDUCED [None]
